FAERS Safety Report 9443623 (Version 1)
Quarter: 2013Q3

REPORT INFORMATION
  Report Type: Spontaneous
  Country: GB (occurrence: None)
  Receive Date: 20130802
  Receipt Date: 20130802
  Transmission Date: 20140515
  Serious: Yes (Hospitalization, Other)
  Sender: FDA-Public Use
  Company Number: GB-DEXPHARM-20130459

PATIENT
  Sex: Female

DRUGS (3)
  1. XGEVA [Suspect]
     Indication: PRODUCT USED FOR UNKNOWN INDICATION
  2. DICLOFENAC [Suspect]
  3. EVEROLIMUS [Concomitant]

REACTIONS (4)
  - Duodenal ulcer haemorrhage [None]
  - Hypocalcaemia [None]
  - Duodenal ulcer [None]
  - Incorrect dose administered [None]
